FAERS Safety Report 17750291 (Version 2)
Quarter: 2020Q2

REPORT INFORMATION
  Report Type: Spontaneous
  Country: US (occurrence: US)
  Receive Date: 20200506
  Receipt Date: 20200511
  Transmission Date: 20200714
  Serious: No
  Sender: FDA-Public Use
  Company Number: US-PFIZER INC-2020179857

PATIENT
  Age: 69 Year
  Sex: Female

DRUGS (3)
  1. MORPHINE SULFATE. [Interacting]
     Active Substance: MORPHINE SULFATE
     Indication: POSTOPERATIVE CARE
     Dosage: UNK
  2. IBRANCE [Suspect]
     Active Substance: PALBOCICLIB
     Indication: NEOPLASM MALIGNANT
     Dosage: 125 MG
     Dates: start: 2016
  3. IBRANCE [Interacting]
     Active Substance: PALBOCICLIB
     Dosage: 100 MG

REACTIONS (3)
  - Sedation [Unknown]
  - Vomiting [Unknown]
  - Drug interaction [Unknown]
